FAERS Safety Report 8563913-5 (Version None)
Quarter: 2012Q3

REPORT INFORMATION
  Report Type: 
  Country: None (occurrence: None)
  Receive Date: 20120727
  Receipt Date: 20120727
  Transmission Date: 20120928
  Serious: Yes (Life-Threatening, Hospitalization, Disabling)
  Sender: FDA-Public Use
  Company Number: None

PATIENT
  Age: 29 Year
  Sex: Male
  Weight: 83.9154 kg

DRUGS (1)
  1. PROPECIA [Suspect]
     Dates: start: 20110501, end: 20111001

REACTIONS (20)
  - PEYRONIE'S DISEASE [None]
  - PANIC ATTACK [None]
  - ANXIETY [None]
  - TESTICULAR PAIN [None]
  - MUSCLE ATROPHY [None]
  - SKIN DISCOLOURATION [None]
  - BODY TEMPERATURE DECREASED [None]
  - GENITAL HYPOAESTHESIA [None]
  - VARICOSE VEIN [None]
  - MUSCLE TWITCHING [None]
  - ERECTILE DYSFUNCTION [None]
  - SUICIDAL IDEATION [None]
  - FEMINISATION ACQUIRED [None]
  - ALOPECIA [None]
  - AMNESIA [None]
  - MALE GENITAL ATROPHY [None]
  - LOSS OF LIBIDO [None]
  - GENITAL DISORDER MALE [None]
  - COGNITIVE DISORDER [None]
  - DISTURBANCE IN ATTENTION [None]
